FAERS Safety Report 8312547-6 (Version None)
Quarter: 2012Q2

REPORT INFORMATION
  Report Type: 
  Country: None (occurrence: None)
  Receive Date: 20120425
  Receipt Date: 20120413
  Transmission Date: 20120825
  Serious: Yes (Other)
  Sender: FDA-Public Use
  Company Number: PHHY2012AU034369

PATIENT
  Sex: Female

DRUGS (7)
  1. NORETHINDRONE [Concomitant]
  2. PAMIDRONATE DISODIUM [Suspect]
     Indication: HYPERCALCAEMIA
     Dosage: 30 TO 60 MG, SIX WEEKLY
  3. PREDNISONE [Concomitant]
  4. ALENDRONATE SODIUM [Suspect]
     Dosage: 70 MG, QW
  5. MYCOPHENOLATE MOFETIL [Concomitant]
     Indication: IMMUNOSUPPRESSION
  6. TACROLIMUS [Concomitant]
  7. CYCLOSPORINE [Concomitant]
     Indication: IMMUNOSUPPRESSION

REACTIONS (7)
  - FRACTURE NONUNION [None]
  - PELVIC FRACTURE [None]
  - STRESS FRACTURE [None]
  - LOW TURNOVER OSTEOPATHY [None]
  - FEMUR FRACTURE [None]
  - FALL [None]
  - FEMORAL NECK FRACTURE [None]
